FAERS Safety Report 7201532-3 (Version None)
Quarter: 2010Q4

REPORT INFORMATION
  Report Type: 
  Country: None (occurrence: None)
  Receive Date: 20101229
  Receipt Date: 20101216
  Transmission Date: 20110411
  Serious: No
  Sender: FDA-Public Use
  Company Number: US-PURDUE-USA-2010-0058024

PATIENT
  Sex: Female

DRUGS (1)
  1. OXYCONTIN [Suspect]
     Dosage: 40 MG, BID
     Dates: start: 20101124

REACTIONS (2)
  - DRUG INEFFECTIVE [None]
  - PRODUCT FORMULATION ISSUE [None]
